FAERS Safety Report 12723434 (Version 2)
Quarter: 2016Q4

REPORT INFORMATION
  Report Type: Report from Study
  Country: IN (occurrence: IN)
  Receive Date: 20160908
  Receipt Date: 20161101
  Transmission Date: 20170207
  Serious: Yes (Death)
  Sender: FDA-Public Use
  Company Number: IN-ROCHE-1827065

PATIENT

DRUGS (3)
  1. WARFARIN [Concomitant]
     Active Substance: WARFARIN
  2. ALTEPLASE [Suspect]
     Active Substance: ALTEPLASE
     Indication: INTRACRANIAL VENOUS SINUS THROMBOSIS
     Dosage: ROUTE: INTRASINUS (CEREBRAL VENOUS SINUS)?DOSE: BOLUS OF 10 MG (10 MG), CONTINUED AT A RATE OF 1 MG/
     Route: 050
  3. HEPARIN [Concomitant]
     Active Substance: HEPARIN SODIUM
     Indication: INTRACRANIAL VENOUS SINUS THROMBOSIS
     Route: 065

REACTIONS (1)
  - Brain herniation [Fatal]
